FAERS Safety Report 13794620 (Version 2)
Quarter: 2017Q3

REPORT INFORMATION
  Report Type: Spontaneous
  Country: US (occurrence: US)
  Receive Date: 20170726
  Receipt Date: 20170901
  Transmission Date: 20171127
  Serious: Yes (Hospitalization)
  Sender: FDA-Public Use
  Company Number: US-PFIZER INC-2017321724

PATIENT
  Age: 57 Year
  Sex: Female

DRUGS (1)
  1. EXEMESTANE. [Suspect]
     Active Substance: EXEMESTANE
     Dosage: 25 MG, UNK

REACTIONS (4)
  - Condition aggravated [Unknown]
  - White blood cell count abnormal [Unknown]
  - Breakthrough pain [Unknown]
  - Fatigue [Unknown]
